FAERS Safety Report 7921725-7 (Version None)
Quarter: 2011Q4

REPORT INFORMATION
  Report Type: 
  Country: None (occurrence: None)
  Receive Date: 20111117
  Receipt Date: 20111104
  Transmission Date: 20120403
  Serious: Yes (Hospitalization)
  Sender: FDA-Public Use
  Company Number: US-GLAXOSMITHKLINE-A0952014A

PATIENT
  Age: 7 Year
  Sex: Female

DRUGS (2)
  1. PAROXETINE HCL [Suspect]
     Indication: GENERALISED ANXIETY DISORDER
     Dosage: 10MG PER DAY
     Route: 048
     Dates: start: 20111025, end: 20111105
  2. NO CONCURRENT MEDICATION [Concomitant]

REACTIONS (19)
  - ABNORMAL BEHAVIOUR [None]
  - ANXIETY [None]
  - STARING [None]
  - PRODUCT QUALITY ISSUE [None]
  - MUSCLE RIGIDITY [None]
  - TENSION [None]
  - ABDOMINAL PAIN UPPER [None]
  - ILL-DEFINED DISORDER [None]
  - CRYING [None]
  - CONVULSION [None]
  - ADVERSE DRUG REACTION [None]
  - TRISMUS [None]
  - FEELING ABNORMAL [None]
  - MYALGIA [None]
  - ASPERGER'S DISORDER [None]
  - AGGRESSION [None]
  - OPISTHOTONUS [None]
  - DYSPNOEA [None]
  - DIARRHOEA [None]
